FAERS Safety Report 7641298-6 (Version None)
Quarter: 2011Q3

REPORT INFORMATION
  Report Type: 
  Country: None (occurrence: None)
  Receive Date: 20110728
  Receipt Date: 20110721
  Transmission Date: 20111222
  Serious: Yes (Other)
  Sender: FDA-Public Use
  Company Number: US-ABBOTT-11P-163-0730587-00

PATIENT
  Sex: Female
  Weight: 40.86 kg

DRUGS (3)
  1. DEPAKOTE [Suspect]
     Indication: CONVULSION
     Dates: end: 20110314
  2. VALPROATE SODIUM [Suspect]
     Indication: CONVULSION
     Dosage: GENERIC
     Dates: start: 20110314
  3. FOCALIN [Concomitant]
     Indication: PRODUCT USED FOR UNKNOWN INDICATION
     Dosage: XR

REACTIONS (3)
  - CONVULSION [None]
  - PRODUCT SUBSTITUTION ISSUE [None]
  - DRUG LEVEL BELOW THERAPEUTIC [None]
